FAERS Safety Report 4505354-3 (Version None)
Quarter: 2004Q4

REPORT INFORMATION
  Report Type: 
  Country: None (occurrence: None)
  Receive Date: 20041119
  Receipt Date: 20041112
  Transmission Date: 20050328
  Serious: Yes (Disabling, Other)
  Sender: FDA-Public Use
  Company Number: 200421326GDDC

PATIENT
  Age: 76 Year
  Sex: Male

DRUGS (6)
  1. RIFATER [Suspect]
     Indication: TUBERCULOSIS
     Dosage: DOSE: 6 TABLETS
     Route: 048
     Dates: start: 20041021
  2. HUMAN MIXTARD [Suspect]
     Indication: DIABETES MELLITUS NON-INSULIN-DEPENDENT
     Dosage: DOSE: UNK
  3. FOSAMAX [Concomitant]
     Indication: OSTEOPOROSIS
     Route: 048
  4. RAMIPRIL [Concomitant]
     Route: 048
  5. FOLIC ACID [Concomitant]
     Route: 048
  6. PREDNISOLONE [Concomitant]
     Route: 048

REACTIONS (2)
  - BLOOD GLUCOSE DECREASED [None]
  - DRUG INTERACTION [None]
